FAERS Safety Report 14943750 (Version 4)
Quarter: 2018Q2

REPORT INFORMATION
  Report Type: Report from Study
  Country: None (occurrence: CH)
  Receive Date: 20180528
  Receipt Date: 20180625
  Transmission Date: 20180711
  Serious: Yes (Hospitalization, Other)
  Sender: FDA-Public Use
  Company Number: CH-ABBVIE-18K-151-2368424-00

PATIENT
  Sex: Male

DRUGS (3)
  1. DUODOPA [Suspect]
     Active Substance: CARBIDOPA\LEVODOPA
     Dosage: MD 7ML, CR DAY 4.5ML/H, CR NIGHT 2.3ML/H, ED 1.5ML, 2 CASSETTES PER 24 HOURS, 24H THERAPY
     Route: 050
     Dates: start: 20170724
  2. DUODOPA [Suspect]
     Active Substance: CARBIDOPA\LEVODOPA
     Indication: PARKINSON^S DISEASE
     Route: 050
     Dates: start: 20150519, end: 20170309
  3. DUODOPA [Suspect]
     Active Substance: CARBIDOPA\LEVODOPA
     Dosage: MD 7ML, CONTINUOUS RATE DAY 4.4ML/H, CONTINUOUS RATE NIGHT 2.2ML/H, ED 1.5ML, 24H THERAPY
     Route: 050
     Dates: start: 20170309, end: 20170724

REACTIONS (3)
  - Stoma site infection [Unknown]
  - General physical health deterioration [Unknown]
  - Hallucination [Recovered/Resolved]
